FAERS Safety Report 26150669 (Version 1)
Quarter: 2025Q4

REPORT INFORMATION
  Report Type: Spontaneous
  Country: KR (occurrence: KR)
  Receive Date: 20251212
  Receipt Date: 20251212
  Transmission Date: 20260118
  Serious: Yes (Other)
  Sender: Kenvue
  Company Number: KR-KENVUE-20251202251

PATIENT
  Age: 6 Decade

DRUGS (4)
  1. TYLENOL 8HR [Suspect]
     Active Substance: ACETAMINOPHEN
     Indication: Product used for unknown indication
     Dosage: 1 DOSAGE FORM, 0.33 TIME A DAY
     Route: 065
  2. AMMONIUM CHLORIDE\CHLORPHENIRAMINE MALEATE\DIHYDROCODEINE BITARTRATE\M [Suspect]
     Active Substance: AMMONIUM CHLORIDE\CHLORPHENIRAMINE MALEATE\DIHYDROCODEINE BITARTRATE\METHYLEPHEDRINE HYDROCHLORIDE,
     Indication: Product used for unknown indication
     Dosage: 1 DOSAGE FORM, 0.33 TIME A DAY
     Route: 065
  3. REBAMIPIDE [Suspect]
     Active Substance: REBAMIPIDE
     Indication: Product used for unknown indication
     Dosage: 1 DOSAGE FORM, 0.33 TIME A DAY
     Route: 065
  4. PREDNISOLONE [Suspect]
     Active Substance: PREDNISOLONE
     Indication: Product used for unknown indication
     Dosage: 0.5 DOSAGE FORM, 0.33 TIME A DAY
     Route: 065

REACTIONS (2)
  - Depressed level of consciousness [Recovering/Resolving]
  - Disturbance in attention [Recovering/Resolving]
